FAERS Safety Report 7390002 (Version 6)
Quarter: 2014Q1

REPORT INFORMATION
  Report Type: Spontaneous
  Country: US (occurrence: US)
  Receive Date: 20100517
  Receipt Date: 20140326
  Transmission Date: 20141002
  Serious: Yes (Disabling, Other)
  Sender: FDA-Public Use
  Company Number: US-RB-008882-10

PATIENT
  Age: 45 Year
  Sex: Male

DRUGS (18)
  1. SUBOXONE TABLET [Suspect]
     Indication: DRUG DEPENDENCE
     Route: 060
     Dates: start: 200910
  2. SUBOXONE TABLET [Suspect]
     Dosage: THE PATIENT WAS TAPERING THE DOSE
     Route: 060
  3. SUBOXONE FILM [Suspect]
     Indication: DRUG DEPENDENCE
     Dosage: SUBOXONE FILM; THE PATIENT WAS CUTTING THE FILM TO ACHIEVE DOSING REGIMEN
     Route: 060
     Dates: start: 201204, end: 201402
  4. SUBOXONE FILM [Suspect]
     Dosage: SUBOXONE FILM; TAPERING OFF OF SUBOXONE; DOSING DETAILS UNKNOWN
     Route: 060
     Dates: start: 201402, end: 201402
  5. SUBOXONE FILM [Suspect]
     Route: 060
     Dates: start: 20140310, end: 20140310
  6. PROZAC [Concomitant]
     Indication: DEPRESSION
     Dosage: UNKNOWN DAILY DOSE
     Route: 048
  7. PROZAC [Concomitant]
     Indication: ANXIETY
     Dosage: UNKNOWN DAILY DOSE
     Route: 048
  8. PROZAC [Concomitant]
     Indication: POST-TRAUMATIC STRESS DISORDER
     Dosage: UNKNOWN DAILY DOSE
     Route: 048
  9. KLONOPIN [Concomitant]
     Indication: ANXIETY DISORDER
     Dosage: UNKNOWN DAILY DOSE
     Route: 048
  10. KLONOPIN [Concomitant]
     Indication: POST-TRAUMATIC STRESS DISORDER
     Dosage: UNKNOWN DAILY DOSE
     Route: 048
  11. RESTORIL [Concomitant]
     Indication: INSOMNIA
     Dosage: DOSING DETAILS UNKNOWN
     Route: 065
  12. NEXIUM [Concomitant]
     Indication: GASTROOESOPHAGEAL REFLUX DISEASE
     Dosage: UNKNOWN DAILY DOSE
     Route: 048
  13. FLONASE [Concomitant]
     Indication: MULTIPLE ALLERGIES
     Dosage: THE PATIENT WAS TAKING MEDICATION AS NEEDED
     Route: 055
  14. SIMVASTATIN [Concomitant]
     Indication: BLOOD CHOLESTEROL INCREASED
     Dosage: UNKNOWN DAILY DOSE
     Route: 065
  15. ACYCLOVIR [Concomitant]
     Indication: HERPES SIMPLEX
     Dosage: THE PATIENT WAS TAKING MEDICATION AS NEEDED
     Route: 065
  16. MIRTAZAPINE [Concomitant]
     Indication: AUTONOMIC NEUROPATHY
     Dosage: UNKNOWN DAILY DOSE
     Route: 048
  17. VITAMIN D [Concomitant]
     Indication: PROPHYLAXIS
     Dosage: UNKNOWN DAILY DOSE
     Route: 048
  18. POTASSIUM [Concomitant]
     Indication: PROPHYLAXIS
     Dosage: UNKNOWN DAILY DOSE
     Route: 048

REACTIONS (11)
  - Weight increased [Recovering/Resolving]
  - Dilatation atrial [Not Recovered/Not Resolved]
  - Oedema [Recovering/Resolving]
  - Somnolence [Not Recovered/Not Resolved]
  - Drug dependence [Recovered/Resolved]
  - Oedema peripheral [Recovering/Resolving]
  - Wrong technique in drug usage process [Recovered/Resolved]
  - Sexual dysfunction [Not Recovered/Not Resolved]
  - Breast pain [Not Recovered/Not Resolved]
  - Dysuria [Recovering/Resolving]
  - Prostatomegaly [Recovering/Resolving]
